FAERS Safety Report 18555291 (Version 1)
Quarter: 2020Q4

REPORT INFORMATION
  Report Type: Spontaneous
  Country: GB (occurrence: GB)
  Receive Date: 20201127
  Receipt Date: 20201127
  Transmission Date: 20210114
  Serious: Yes (Disabling)
  Sender: FDA-Public Use
  Company Number: GB-ASTRAZENECA-2020SF54572

PATIENT
  Age: 81 Year
  Sex: Female

DRUGS (16)
  1. GLYCERYL TRINITRATE [Concomitant]
     Active Substance: NITROGLYCERIN
  2. CALCICHEW D3 FORTE [Concomitant]
     Active Substance: CALCIUM\CHOLECALCIFEROL
  3. EYE DROPS [Concomitant]
     Active Substance: UNSPECIFIED INGREDIENT
     Dosage: 0.15% UNKNOWN
     Route: 047
  4. FUROSEMIDE. [Concomitant]
     Active Substance: FUROSEMIDE
  5. METFORMIN [Concomitant]
     Active Substance: METFORMIN HYDROCHLORIDE
  6. DAPAGLIFLOZIN. [Suspect]
     Active Substance: DAPAGLIFLOZIN
     Route: 048
     Dates: start: 20200825, end: 20201029
  7. FOSTAIR [Concomitant]
     Active Substance: BECLOMETHASONE\FORMOTEROL
  8. LANTUS [Concomitant]
     Active Substance: INSULIN GLARGINE
  9. ZEMTARD MR [Concomitant]
  10. DIGOXIN. [Concomitant]
     Active Substance: DIGOXIN
  11. RISEDRONIC ACID [Concomitant]
     Active Substance: RISEDRONIC ACID
  12. WARFARIN [Concomitant]
     Active Substance: WARFARIN
  13. ATORVASTATIN [Concomitant]
     Active Substance: ATORVASTATIN
  14. SALBUTAMOL [Concomitant]
     Active Substance: ALBUTEROL
  15. LISINOPRIL. [Concomitant]
     Active Substance: LISINOPRIL
  16. BRALTUS [Concomitant]
     Active Substance: TIOTROPIUM BROMIDE

REACTIONS (3)
  - Skin discolouration [Unknown]
  - Necrosis [Recovered/Resolved with Sequelae]
  - Pain [Unknown]

NARRATIVE: CASE EVENT DATE: 20201015
